FAERS Safety Report 7131637-7 (Version None)
Quarter: 2010Q4

REPORT INFORMATION
  Report Type: 
  Country: None (occurrence: None)
  Receive Date: 20101201
  Receipt Date: 20101123
  Transmission Date: 20110411
  Serious: Yes (Hospitalization, Other)
  Sender: FDA-Public Use
  Company Number: GB-ABBOTT-10P-167-0642585-00

PATIENT
  Sex: Female
  Weight: 57 kg

DRUGS (19)
  1. HUMIRA [Suspect]
     Indication: RHEUMATOID ARTHRITIS
     Route: 058
     Dates: start: 20070802, end: 20091111
  2. METHOTREXATE SODIUM [Concomitant]
     Indication: RHEUMATOID ARTHRITIS
     Dosage: ON SATURDAYS
     Dates: start: 20070731, end: 20091111
  3. FOLIC ACID [Concomitant]
     Indication: PRODUCT USED FOR UNKNOWN INDICATION
     Dosage: ON THURSDAYS
     Dates: start: 20070731
  4. RISEDRONATE SODIUM [Concomitant]
     Indication: PRODUCT USED FOR UNKNOWN INDICATION
     Dosage: ON WEDNESDAYS
     Dates: start: 20070731
  5. PREDNISOLONE [Concomitant]
     Indication: PRODUCT USED FOR UNKNOWN INDICATION
     Dates: start: 20070731
  6. CALCEOS CHEWABLE TABLETS [Concomitant]
     Indication: PRODUCT USED FOR UNKNOWN INDICATION
     Dosage: 1 MIDDAY AND 1 EVENING
  7. PARACETAMOL [Concomitant]
     Indication: PRODUCT USED FOR UNKNOWN INDICATION
     Dosage: 4 IN 1 D PRN
     Route: 048
  8. LACTULOSE [Concomitant]
     Indication: PRODUCT USED FOR UNKNOWN INDICATION
     Dosage: 3.35 G IN 5 ML 2 IN 1 D
  9. FLUCONAZOLE [Concomitant]
     Indication: PRODUCT USED FOR UNKNOWN INDICATION
     Dosage: INCREASING DOSE 1 IN 1 D
  10. SODIUM CHLORIDE M/R [Concomitant]
     Indication: PRODUCT USED FOR UNKNOWN INDICATION
  11. RIFATER [Concomitant]
     Indication: PRODUCT USED FOR UNKNOWN INDICATION
     Dosage: MANE
  12. ETHAMBUTOL HYDROCHLORIDE [Concomitant]
     Indication: PRODUCT USED FOR UNKNOWN INDICATION
     Dosage: MANE
  13. ETHAMBUTOL HYDROCHLORIDE [Concomitant]
  14. PYRIDOXINE HYDROCHLORIDE [Concomitant]
     Indication: PRODUCT USED FOR UNKNOWN INDICATION
  15. ENSURE PLUS ASSORTED FLAVOURS [Concomitant]
     Indication: PRODUCT USED FOR UNKNOWN INDICATION
  16. ENSURE PLUS CREME ASSORTED FLAVOURS [Concomitant]
     Indication: PRODUCT USED FOR UNKNOWN INDICATION
  17. IBUPROFEN [Concomitant]
     Indication: PRODUCT USED FOR UNKNOWN INDICATION
     Dosage: 3 IN 1 D PRN
  18. ETHAMBUTOL HYDROCHLORIDE [Concomitant]
     Dosage: MANE
  19. ETHAMBUTOL HYDROCHLORIDE [Concomitant]

REACTIONS (6)
  - LIVER FUNCTION TEST ABNORMAL [None]
  - MALAISE [None]
  - MITRAL VALVE INCOMPETENCE [None]
  - PULMONARY TUBERCULOSIS [None]
  - SEPSIS [None]
  - TRICUSPID VALVE INCOMPETENCE [None]
